FAERS Safety Report 6299854-6 (Version None)
Quarter: 2009Q3

REPORT INFORMATION
  Report Type: 
  Country: None (occurrence: None)
  Receive Date: 20090806
  Receipt Date: 20090729
  Transmission Date: 20100115
  Serious: No
  Sender: FDA-Public Use
  Company Number: US-B.I. PHARMACEUTICALS,INC./RIDGEFIELD-2009-BP-09020BP

PATIENT
  Sex: Female

DRUGS (12)
  1. SPIRIVA [Suspect]
     Indication: CHRONIC OBSTRUCTIVE PULMONARY DISEASE
     Dosage: 18 MCG
     Route: 055
     Dates: start: 20080101, end: 20080101
  2. ASPIRIN [Concomitant]
     Indication: PROPHYLAXIS
  3. THEOPHYLLINE 24 [Concomitant]
     Indication: CHRONIC OBSTRUCTIVE PULMONARY DISEASE
  4. PHILLIPS  MOM [Concomitant]
     Indication: CONSTIPATION
  5. DICOSENATE (GENERIC) [Concomitant]
     Indication: CONSTIPATION
  6. LEXAPRO [Concomitant]
     Indication: DEPRESSION
  7. TRAZODONE HCL [Concomitant]
     Indication: DEPRESSION
  8. TRAZODONE HCL [Concomitant]
     Indication: ANXIETY
  9. PROPOXYPHENE HCL CAP [Concomitant]
     Indication: FIBROMYALGIA
  10. XANAX [Concomitant]
     Indication: DEPRESSION
  11. ALKA SELTZER [Concomitant]
     Indication: ANALGESIA
  12. GABAPENTIN [Concomitant]
     Indication: FIBROMYALGIA

REACTIONS (2)
  - LIP SWELLING [None]
  - ORAL HERPES [None]
